FAERS Safety Report 5479549-9 (Version None)
Quarter: 2007Q4

REPORT INFORMATION
  Report Type: 
  Country: None (occurrence: None)
  Receive Date: 20071008
  Receipt Date: 20071002
  Transmission Date: 20080405
  Serious: Yes (Death)
  Sender: FDA-Public Use
  Company Number: US-AVENTIS-200719145GDDC

PATIENT
  Age: 58 Year
  Sex: Female

DRUGS (6)
  1. ARAVA [Suspect]
     Indication: RHEUMATOID ARTHRITIS
     Route: 048
     Dates: start: 20020411, end: 20020927
  2. PLAQUENIL                          /00072601/ [Suspect]
     Route: 048
     Dates: start: 20021023, end: 20030113
  3. ENBREL [Suspect]
     Route: 058
     Dates: start: 20030113, end: 20030220
  4. NAPROXEN [Concomitant]
     Dosage: DOSE: UNK
  5. ASPIRIN [Concomitant]
     Dosage: DOSE: UNK
  6. CALCIUM [Concomitant]
     Dosage: DOSE: UNK

REACTIONS (1)
  - SMALL CELL LUNG CANCER METASTATIC [None]
